FAERS Safety Report 6738605-5 (Version None)
Quarter: 2010Q2

REPORT INFORMATION
  Report Type: 
  Country: None (occurrence: None)
  Receive Date: 20100524
  Receipt Date: 20100514
  Transmission Date: 20101027
  Serious: Yes (Other)
  Sender: FDA-Public Use
  Company Number: DE-PFIZER INC-2010055814

PATIENT
  Age: 55 Year
  Sex: Male
  Weight: 103.86 kg

DRUGS (1)
  1. SORTIS [Suspect]
     Indication: HYPERLIPIDAEMIA
     Dosage: 20 MG, 1X/DAY
     Route: 048
     Dates: start: 20000101, end: 20100201

REACTIONS (1)
  - TENDON DISORDER [None]
